FAERS Safety Report 6165909-X (Version None)
Quarter: 2009Q2

REPORT INFORMATION
  Report Type: 
  Country: None (occurrence: None)
  Receive Date: 20090422
  Receipt Date: 20090409
  Transmission Date: 20091009
  Serious: Yes (Hospitalization)
  Sender: FDA-Public Use
  Company Number: 8044717

PATIENT
  Age: 49 Year
  Sex: Male

DRUGS (6)
  1. KEPPRA [Suspect]
     Indication: EPILEPSY
     Dosage: 1500 MG 2/D PO
     Route: 048
     Dates: start: 20060101
  2. BANZEL [Concomitant]
  3. ZOMIG [Concomitant]
  4. TRILEPTAL [Concomitant]
  5. TOPAMAX [Concomitant]
  6. REQUIP [Concomitant]

REACTIONS (2)
  - CONVULSION [None]
  - FALL [None]
